FAERS Safety Report 8322734-9 (Version None)
Quarter: 2012Q2

REPORT INFORMATION
  Report Type: 
  Country: None (occurrence: None)
  Receive Date: 20120426
  Receipt Date: 20120411
  Transmission Date: 20120825
  Serious: Yes (Other)
  Sender: FDA-Public Use
  Company Number: JPI-P-020162

PATIENT
  Age: 37 Year
  Sex: Female
  Weight: 72.5755 kg

DRUGS (5)
  1. MONTELUKAST SODIUM [Concomitant]
  2. ZONISAMIDE [Concomitant]
  3. XYREM [Suspect]
     Indication: NARCOLEPSY
     Dosage: SEE IMAGE
     Route: 048
     Dates: start: 20111222
  4. XYREM [Suspect]
     Indication: NARCOLEPSY
     Dosage: SEE IMAGE
     Route: 048
     Dates: start: 20120403
  5. ALBUTEROL [Concomitant]

REACTIONS (14)
  - CYANOSIS [None]
  - SLUGGISHNESS [None]
  - HEAD INJURY [None]
  - HANGOVER [None]
  - NECK PAIN [None]
  - SOMNOLENCE [None]
  - PHOTOPHOBIA [None]
  - RESTLESS LEGS SYNDROME [None]
  - URINARY INCONTINENCE [None]
  - FALL [None]
  - SUDDEN ONSET OF SLEEP [None]
  - NEPHROLITHIASIS [None]
  - PAIN [None]
  - NAUSEA [None]
